FAERS Safety Report 5635824-6 (Version None)
Quarter: 2008Q1

REPORT INFORMATION
  Report Type: 
  Country: None (occurrence: None)
  Receive Date: 20080221
  Receipt Date: 20080208
  Transmission Date: 20080703
  Serious: Yes (Other)
  Sender: FDA-Public Use
  Company Number: 2008JP000781

PATIENT
  Age: 40 Year
  Sex: Male

DRUGS (1)
  1. PROGRAF [Suspect]
     Indication: STEM CELL TRANSPLANT

REACTIONS (3)
  - GENITAL ULCERATION [None]
  - HERPES SIMPLEX [None]
  - NAIL DISORDER [None]
